FAERS Safety Report 24690058 (Version 1)
Quarter: 2024Q4

REPORT INFORMATION
  Report Type: Spontaneous
  Country: US (occurrence: US)
  Receive Date: 20241203
  Receipt Date: 20241203
  Transmission Date: 20250115
  Serious: Yes (Other)
  Sender: Norvium Bioscience
  Company Number: US-Norvium Bioscience LLC-079704

PATIENT
  Age: 57 Year
  Sex: Female

DRUGS (1)
  1. MIRTAZAPINE [Suspect]
     Active Substance: MIRTAZAPINE
     Indication: Anxiety

REACTIONS (2)
  - Ototoxicity [Recovering/Resolving]
  - Off label use [Unknown]
